FAERS Safety Report 8746341 (Version 3)
Quarter: 2012Q4

REPORT INFORMATION
  Report Type: Report from Study
  Country: JP (occurrence: JP)
  Receive Date: 20120827
  Receipt Date: 20121106
  Transmission Date: 20130627
  Serious: Yes (Hospitalization)
  Sender: FDA-Public Use
  Company Number: JP-JNJFOC-20120714844

PATIENT
  Age: 87 Year
  Sex: Male
  Weight: 44 kg

DRUGS (9)
  1. REMINYL [Suspect]
     Indication: DEMENTIA WITH LEWY BODIES
     Route: 048
     Dates: start: 20111124, end: 20111209
  2. REMINYL [Suspect]
     Indication: DEMENTIA WITH LEWY BODIES
     Route: 048
     Dates: start: 20111210, end: 20120108
  3. REMINYL [Suspect]
     Indication: DEMENTIA WITH LEWY BODIES
     Route: 048
     Dates: start: 20111023, end: 20111123
  4. RISPERIDONE [Suspect]
     Indication: DEMENTIA WITH LEWY BODIES
     Route: 048
     Dates: start: 20111105
  5. RISPERIDONE [Suspect]
     Indication: DEMENTIA WITH LEWY BODIES
     Route: 048
     Dates: start: 20111023, end: 20111104
  6. GASMOTIN [Concomitant]
     Indication: DECREASED APPETITE
     Route: 048
     Dates: start: 20111210
  7. GOODMIN [Concomitant]
     Indication: DEMENTIA WITH LEWY BODIES
     Route: 048
     Dates: start: 20111023, end: 20111106
  8. GOODMIN [Concomitant]
     Indication: DEMENTIA WITH LEWY BODIES
     Route: 048
     Dates: start: 20111112
  9. SILECE [Concomitant]
     Indication: DEMENTIA WITH LEWY BODIES
     Route: 048
     Dates: start: 20111029

REACTIONS (3)
  - Pneumonia aspiration [Unknown]
  - Blood pressure decreased [Unknown]
  - Decreased appetite [Recovering/Resolving]
